FAERS Safety Report 18666926 (Version 1)
Quarter: 2020Q4

REPORT INFORMATION
  Report Type: Spontaneous
  Country: GB (occurrence: GB)
  Receive Date: 20201228
  Receipt Date: 20201228
  Transmission Date: 20210114
  Serious: Yes (Death, Other)
  Sender: FDA-Public Use
  Company Number: GB-AUROBINDO-AUR-APL-2020-062566

PATIENT
  Age: 25 Year
  Sex: Male

DRUGS (1)
  1. CITALOPRAM [Suspect]
     Active Substance: CITALOPRAM HYDROBROMIDE
     Indication: ANTIDEPRESSANT THERAPY
     Dosage: 10 MILLIGRAM
     Route: 065
     Dates: start: 20200109

REACTIONS (3)
  - Drug monitoring procedure not performed [Unknown]
  - Mood altered [Not Recovered/Not Resolved]
  - Completed suicide [Fatal]
